FAERS Safety Report 17958693 (Version 4)
Quarter: 2020Q3

REPORT INFORMATION
  Report Type: Spontaneous
  Country: US (occurrence: US)
  Receive Date: 20200629
  Receipt Date: 20200713
  Transmission Date: 20201103
  Serious: No
  Sender: FDA-Public Use
  Company Number: US-PFIZER INC-2020247263

PATIENT
  Age: 61 Year
  Sex: Female
  Weight: 92.99 kg

DRUGS (1)
  1. IBRANCE [Suspect]
     Active Substance: PALBOCICLIB
     Indication: BREAST CANCER METASTATIC
     Dosage: UNK, CYCLIC (21 DAYS ON AND 7 DAYS OFF)
     Dates: start: 201706

REACTIONS (3)
  - Memory impairment [Unknown]
  - Arthropathy [Unknown]
  - Muscular weakness [Unknown]
